FAERS Safety Report 14522378 (Version 4)
Quarter: 2018Q2

REPORT INFORMATION
  Report Type: Report from Study
  Country: US (occurrence: US)
  Receive Date: 20180212
  Receipt Date: 20180511
  Transmission Date: 20180711
  Serious: Yes (Other)
  Sender: FDA-Public Use
  Company Number: US-ACTELION-A-NJ2018-167203

PATIENT
  Age: 33 Year
  Sex: Female

DRUGS (11)
  1. OPSUMIT [Suspect]
     Active Substance: MACITENTAN
     Indication: PULMONARY HYPERTENSION
     Dosage: 10 MG, QD
     Route: 048
     Dates: start: 20170725, end: 20180201
  2. PRILOSEC [Concomitant]
     Active Substance: OMEPRAZOLE MAGNESIUM
     Dosage: UNK
     Dates: start: 20171102
  3. CLONAZEPAM. [Concomitant]
     Active Substance: CLONAZEPAM
  4. OPSUMIT [Suspect]
     Active Substance: MACITENTAN
     Dosage: 10 MG, QD
     Route: 048
  5. SPIRONOLACTONE. [Concomitant]
     Active Substance: SPIRONOLACTONE
  6. LOSARTAN. [Concomitant]
     Active Substance: LOSARTAN
  7. VITAMIN D [Concomitant]
     Active Substance: CHOLECALCIFEROL
  8. VENTOLIN [Concomitant]
     Active Substance: ALBUTEROL SULFATE
  9. SYMBICORT [Concomitant]
     Active Substance: BUDESONIDE\FORMOTEROL FUMARATE DIHYDRATE
  10. REMODULIN [Concomitant]
     Active Substance: TREPROSTINIL
     Dosage: UNK
     Dates: start: 20171102
  11. FUROSEMIDE. [Concomitant]
     Active Substance: FUROSEMIDE

REACTIONS (15)
  - Pregnancy [Recovered/Resolved]
  - Uterine dilation and curettage [Unknown]
  - Tinnitus [Unknown]
  - Exposure during pregnancy [Unknown]
  - Dyspepsia [Unknown]
  - Nausea [Unknown]
  - Abortion induced [Unknown]
  - Brain natriuretic peptide increased [Unknown]
  - Deafness [Unknown]
  - Fatigue [Unknown]
  - Vertigo [Unknown]
  - Right ventricular dysfunction [Unknown]
  - Ear congestion [Unknown]
  - Dyspnoea [Unknown]
  - Dizziness exertional [Unknown]

NARRATIVE: CASE EVENT DATE: 201801
